FAERS Safety Report 19869177 (Version 1)
Quarter: 2021Q3

REPORT INFORMATION
  Report Type: Report from Study
  Country: None (occurrence: IT)
  Receive Date: 20210923
  Receipt Date: 20210923
  Transmission Date: 20211014
  Serious: Yes (Hospitalization, Other)
  Sender: FDA-Public Use
  Company Number: IT-ABBVIE-21K-083-4086625-00

PATIENT
  Age: 70 Year
  Sex: Male

DRUGS (2)
  1. DUODOPA [Suspect]
     Active Substance: CARBIDOPA\LEVODOPA
  2. DUODOPA [Suspect]
     Active Substance: CARBIDOPA\LEVODOPA
     Indication: PARKINSON^S DISEASE
     Dosage: TOTAL DAILY DOSE (MG): 616, PUMP SETTING: MD: 4,8 PLUS 3, CR: 1,6 (15H), ED: 1
     Route: 050
     Dates: start: 20180925

REACTIONS (3)
  - Thermal burn [Recovered/Resolved with Sequelae]
  - Fall [Recovered/Resolved with Sequelae]
  - Psychomotor skills impaired [Unknown]

NARRATIVE: CASE EVENT DATE: 2021
